FAERS Safety Report 25889950 (Version 1)
Quarter: 2025Q4

REPORT INFORMATION
  Report Type: Spontaneous
  Country: US (occurrence: US)
  Receive Date: 20251007
  Receipt Date: 20251007
  Transmission Date: 20260117
  Serious: No
  Sender: GLAXOSMITHKLINE
  Company Number: US-GSK-US2025AMR121900

PATIENT
  Sex: Female

DRUGS (3)
  1. BENLYSTA [Suspect]
     Active Substance: BELIMUMAB
     Indication: Restless legs syndrome
     Dosage: 200 MG, WE
     Dates: start: 202203
  2. BENLYSTA [Suspect]
     Active Substance: BELIMUMAB
     Indication: Psoriasis
  3. BENLYSTA [Suspect]
     Active Substance: BELIMUMAB
     Indication: Systemic lupus erythematosus

REACTIONS (2)
  - Upper respiratory tract infection [Not Recovered/Not Resolved]
  - Product use in unapproved indication [Unknown]
